FAERS Safety Report 16092659 (Version 1)
Quarter: 2019Q1

REPORT INFORMATION
  Report Type: Spontaneous
  Country: US (occurrence: US)
  Receive Date: 20190319
  Receipt Date: 20190319
  Transmission Date: 20190418
  Serious: No
  Sender: FDA-Public Use
  Company Number: US-ASTRAZENECA-2019SE30213

PATIENT
  Age: 30981 Day
  Sex: Female
  Weight: 61.2 kg

DRUGS (1)
  1. BRILINTA [Suspect]
     Active Substance: TICAGRELOR
     Indication: STENT PLACEMENT
     Route: 048
     Dates: start: 20190215

REACTIONS (5)
  - Dyspnoea [Unknown]
  - Malaise [Unknown]
  - Pain [Not Recovered/Not Resolved]
  - Muscle tightness [Unknown]
  - Asthenia [Unknown]

NARRATIVE: CASE EVENT DATE: 20190215
